FAERS Safety Report 5057719-1 (Version None)
Quarter: 2006Q3

REPORT INFORMATION
  Report Type: 
  Country: None (occurrence: None)
  Receive Date: 20060721
  Receipt Date: 20060125
  Transmission Date: 20061208
  Serious: Yes (Other)
  Sender: FDA-Public Use
  Company Number: US-GLAXOSMITHKLINE-A0590912A

PATIENT
  Age: 75 Year
  Sex: Male

DRUGS (7)
  1. AVANDIA [Suspect]
     Dosage: 4MG TWICE PER DAY
     Route: 048
  2. GLUCOTROL XL [Concomitant]
  3. BENICAR [Concomitant]
     Route: 065
  4. TOPROL-XL [Concomitant]
  5. ZOCOR [Concomitant]
  6. CLONIDINE [Concomitant]
  7. METFORMIN [Concomitant]

REACTIONS (1)
  - DIABETES MELLITUS INADEQUATE CONTROL [None]
